FAERS Safety Report 4265946-6 (Version None)
Quarter: 2004Q1

REPORT INFORMATION
  Report Type: 
  Country: None (occurrence: None)
  Receive Date: 20040106
  Receipt Date: 20031225
  Transmission Date: 20041129
  Serious: Yes (Hospitalization)
  Sender: FDA-Public Use
  Company Number: 03P-087-0245238-00

PATIENT
  Age: 1 Year
  Sex: Male
  Weight: 12 kg

DRUGS (5)
  1. OMNICEF [Suspect]
     Indication: GASTROINTESTINAL DISORDER
     Dosage: PER ORAL
     Route: 048
     Dates: start: 20031122, end: 20031130
  2. OMNICEF [Suspect]
     Indication: NASOPHARYNGITIS
     Dosage: PER ORAL
     Route: 048
     Dates: start: 20031122, end: 20031130
  3. LACTOBACILLUS ACIDOPHILUS [Concomitant]
  4. CYPROHEPTADINE HCL [Concomitant]
  5. AMBROXOL HYDROCHLORIDE [Concomitant]

REACTIONS (3)
  - ABDOMINAL DISTENSION [None]
  - KAWASAKI'S DISEASE [None]
  - STEVENS-JOHNSON SYNDROME [None]
